FAERS Safety Report 7302019-X (Version None)
Quarter: 2011Q1

REPORT INFORMATION
  Report Type: 
  Country: None (occurrence: None)
  Receive Date: 20110218
  Receipt Date: 20110207
  Transmission Date: 20110831
  Serious: Yes (Hospitalization)
  Sender: FDA-Public Use
  Company Number: FR-PFIZER INC-2011036207

PATIENT
  Age: 36 Year
  Sex: Female

DRUGS (5)
  1. OXOMEMAZINE [Suspect]
     Dosage: 3 DF, DAILY
     Route: 048
     Dates: start: 20110101, end: 20110107
  2. ACETAMINOPHEN [Suspect]
     Dosage: 4 DF, DAILY
     Route: 048
     Dates: end: 20110107
  3. PHOSPHONEUROS [Suspect]
     Dosage: 1 DF, 1X/DAY
     Route: 048
     Dates: start: 20101122, end: 20110107
  4. ATARAX [Suspect]
     Dosage: 1 DF, 1X/DAY
     Route: 048
     Dates: end: 20110107
  5. BEVITINE [Suspect]
     Dosage: 1 DF, 1X/DAY
     Route: 048
     Dates: start: 20101122, end: 20110107

REACTIONS (3)
  - TOXIC SKIN ERUPTION [None]
  - AGRANULOCYTOSIS [None]
  - MEGAKARYOCYTES DECREASED [None]
